FAERS Safety Report 13195045 (Version 2)
Quarter: 2017Q1

REPORT INFORMATION
  Report Type: Report from Study
  Country: None (occurrence: SA)
  Receive Date: 20170207
  Receipt Date: 20170216
  Transmission Date: 20170428
  Serious: Yes (Death, Hospitalization)
  Sender: FDA-Public Use
  Company Number: SA-ABBVIE-17P-259-1861232-00

PATIENT
  Age: 61 Year
  Sex: Male

DRUGS (3)
  1. VIEKIRAX [Suspect]
     Active Substance: OMBITASVIR\PARITAPREVIR\RITONAVIR
     Indication: HEPATITIS C
     Route: 048
     Dates: start: 20161207, end: 20170201
  2. EXVIERA [Suspect]
     Active Substance: DASABUVIR
     Indication: HEPATITIS C
     Route: 048
     Dates: start: 20161207, end: 20170201
  3. RIBAVIRIN. [Concomitant]
     Active Substance: RIBAVIRIN
     Indication: HEPATITIS C
     Route: 048
     Dates: start: 20161207, end: 20170201

REACTIONS (7)
  - Pyrexia [Unknown]
  - Urinary retention [Unknown]
  - Haemorrhage [Unknown]
  - Skin ulcer [Unknown]
  - Sepsis [Fatal]
  - Duodenal ulcer [Unknown]
  - Subcutaneous abscess [Unknown]
